FAERS Safety Report 21450463 (Version 1)
Quarter: 2022Q4

REPORT INFORMATION
  Report Type: Spontaneous
  Country: US (occurrence: US)
  Receive Date: 20221013
  Receipt Date: 20221013
  Transmission Date: 20230113
  Serious: No
  Sender: FDA-Public Use
  Company Number: US-PERRIGO-22US010092

PATIENT
  Age: 2 Year

DRUGS (2)
  1. CHILDRENS CETIRIZINE HYDROCHLORIDE ALLERGY [Suspect]
     Active Substance: CETIRIZINE HYDROCHLORIDE
     Indication: Product used for unknown indication
     Dosage: 2.5 MG, SINGLE
     Route: 048
     Dates: start: 20220721, end: 20220721
  2. CHILDRENS CETIRIZINE HYDROCHLORIDE ALLERGY [Suspect]
     Active Substance: CETIRIZINE HYDROCHLORIDE
     Indication: Accidental exposure to product
     Dosage: 10 MG, SINGLE
     Route: 048
     Dates: start: 20220721, end: 20220721

REACTIONS (2)
  - Accidental exposure to product by child [Unknown]
  - Overdose [Unknown]

NARRATIVE: CASE EVENT DATE: 20220721
